FAERS Safety Report 10144206 (Version 3)
Quarter: 2014Q2

REPORT INFORMATION
  Report Type: Report from Study
  Country: DE (occurrence: DE)
  Receive Date: 20140430
  Receipt Date: 20140527
  Transmission Date: 20141212
  Serious: Yes (Hospitalization)
  Sender: FDA-Public Use
  Company Number: DE-MILLENNIUM PHARMACEUTICALS, INC.-2012-05096

PATIENT
  Sex: 0

DRUGS (2)
  1. VELCADE [Suspect]
     Indication: PLASMA CELL MYELOMA
     Dosage: 1.3 MG/M2, UNK
     Route: 042
     Dates: start: 20111220, end: 20120207
  2. MELPHALAN [Concomitant]
     Indication: PLASMA CELL MYELOMA
     Dosage: 100 MG/M2, UNK
     Route: 042
     Dates: start: 20120414, end: 20120415

REACTIONS (1)
  - Endocarditis [Recovered/Resolved]
